FAERS Safety Report 18959694 (Version 2)
Quarter: 2021Q1

REPORT INFORMATION
  Report Type: Spontaneous
  Country: MT (occurrence: MT)
  Receive Date: 20210302
  Receipt Date: 20210305
  Transmission Date: 20210420
  Serious: Yes (Hospitalization, Other)
  Sender: FDA-Public Use
  Company Number: MT-ALLERGAN-2108650US

PATIENT
  Sex: Female

DRUGS (1)
  1. LEVONORGESTREL UNK [Suspect]
     Active Substance: LEVONORGESTREL
     Indication: PRODUCT USED FOR UNKNOWN INDICATION
     Route: 015

REACTIONS (6)
  - Oedema peripheral [Unknown]
  - Acute respiratory distress syndrome [Unknown]
  - Salpingitis [Unknown]
  - Actinomycotic sepsis [Unknown]
  - Actinomycosis [Unknown]
  - Pelvic inflammatory disease [Unknown]
